FAERS Safety Report 25375559 (Version 1)
Quarter: 2025Q2

REPORT INFORMATION
  Report Type: Spontaneous
  Country: FR (occurrence: FR)
  Receive Date: 20250529
  Receipt Date: 20250529
  Transmission Date: 20250716
  Serious: Yes (Life-Threatening, Hospitalization)
  Sender: PFIZER
  Company Number: None

PATIENT
  Age: 64 Year
  Sex: Female

DRUGS (3)
  1. DOXORUBICIN HYDROCHLORIDE [Suspect]
     Active Substance: DOXORUBICIN HYDROCHLORIDE
     Indication: Invasive ductal breast carcinoma
     Route: 042
     Dates: start: 200804, end: 200808
  2. DOCETAXEL [Concomitant]
     Active Substance: DOCETAXEL
     Indication: Invasive ductal breast carcinoma
     Dates: start: 200804, end: 200808
  3. CYCLOPHOSPHAMIDE [Concomitant]
     Active Substance: CYCLOPHOSPHAMIDE
     Indication: Invasive ductal breast carcinoma
     Dates: start: 200804, end: 200808

REACTIONS (2)
  - Cardiogenic shock [Recovered/Resolved]
  - Dilated cardiomyopathy [Recovering/Resolving]

NARRATIVE: CASE EVENT DATE: 20230101
